FAERS Safety Report 8381907-X (Version None)
Quarter: 2012Q2

REPORT INFORMATION
  Report Type: 
  Country: None (occurrence: None)
  Receive Date: 20120522
  Receipt Date: 20120522
  Transmission Date: 20120825
  Serious: Yes (Hospitalization)
  Sender: FDA-Public Use
  Company Number: None

PATIENT
  Age: 49 Year
  Sex: Male
  Weight: 102 kg

DRUGS (5)
  1. ENOXAPARIN [Concomitant]
  2. WARFARIN SODIUM [Concomitant]
  3. DIGOXIN [Concomitant]
  4. DRONEDARONE HCL [Suspect]
     Indication: ATRIAL FIBRILLATION
     Dosage: 400MG TWICE DAILY PO
     Route: 048
     Dates: start: 20111101, end: 20111125
  5. DILTIAZEM [Concomitant]

REACTIONS (3)
  - ACUTE CORONARY SYNDROME [None]
  - LIVER FUNCTION TEST ABNORMAL [None]
  - CHEST PAIN [None]
